FAERS Safety Report 20566311 (Version 1)
Quarter: 2022Q1

REPORT INFORMATION
  Report Type: Spontaneous
  Country: US (occurrence: None)
  Receive Date: 20220307
  Receipt Date: 20220307
  Transmission Date: 20220423
  Serious: Yes (Other)
  Sender: FDA-Public Use
  Company Number: None

PATIENT
  Age: 81 Year
  Sex: Male
  Weight: 81 kg

DRUGS (15)
  1. XARELTO [Suspect]
     Active Substance: RIVAROXABAN
     Indication: Atrial fibrillation
     Dosage: FREQUENCY : DAILY;?
     Route: 048
     Dates: start: 20210427
  2. AMLODIPINE [Concomitant]
     Active Substance: AMLODIPINE BESYLATE
     Dates: start: 20120920
  3. carvediolol 25 mg [Concomitant]
     Dates: start: 20120827
  4. digoxin 125 mcg (rarely uses) [Concomitant]
     Dates: start: 20130509
  5. MECLIZINE HYDROCHLORIDE [Concomitant]
     Active Substance: MECLIZINE HYDROCHLORIDE
     Dates: start: 20211129
  6. METFORMIN [Concomitant]
     Active Substance: METFORMIN HYDROCHLORIDE
     Dates: start: 20120827
  7. ROSUVASTATIN [Concomitant]
     Active Substance: ROSUVASTATIN
     Dates: start: 20180716
  8. SILDENAFIL [Concomitant]
     Active Substance: SILDENAFIL
     Dates: start: 20120913
  9. VALSARTAN AND HYDROCHLOROTHIAZIDE [Concomitant]
     Active Substance: HYDROCHLOROTHIAZIDE\VALSARTAN
     Dates: start: 20180716
  10. CALCIUM\VITAMIN D [Concomitant]
     Active Substance: CALCIUM\VITAMIN D
     Dates: start: 20160202
  11. tums 500 mg [Concomitant]
     Dates: start: 20200915
  12. vitamin C 100 mg [Concomitant]
     Dates: start: 20121002
  13. FISH OIL [Concomitant]
     Active Substance: FISH OIL
     Dates: start: 20120827
  14. cinnamon 500 mg [Concomitant]
     Dates: start: 20121002
  15. VITAMINS [Concomitant]
     Active Substance: VITAMINS
     Dates: start: 20121002

REACTIONS (4)
  - Dizziness [None]
  - Vertigo [None]
  - Seizure [None]
  - Ligament sprain [None]

NARRATIVE: CASE EVENT DATE: 20220225
